FAERS Safety Report 14361423 (Version 3)
Quarter: 2018Q1

REPORT INFORMATION
  Report Type: Spontaneous
  Country: DE (occurrence: DE)
  Receive Date: 20180108
  Receipt Date: 20180110
  Transmission Date: 20180509
  Serious: Yes (Life-Threatening, Hospitalization)
  Sender: FDA-Public Use
  Company Number: DE-B.I. PHARMACEUTICALS,INC./RIDGEFIELD-2018-BI-000305

PATIENT
  Age: 64 Year
  Sex: Male
  Weight: 130 kg

DRUGS (7)
  1. JARDIANCE [Suspect]
     Active Substance: EMPAGLIFLOZIN
     Route: 048
     Dates: start: 201801
  2. OMNIFLORA [Concomitant]
     Indication: PRODUCT USED FOR UNKNOWN INDICATION
     Route: 048
  3. BICANORM [Concomitant]
     Active Substance: SODIUM BICARBONATE
     Indication: PRODUCT USED FOR UNKNOWN INDICATION
     Route: 065
  4. JARDIANCE [Suspect]
     Active Substance: EMPAGLIFLOZIN
     Indication: TYPE 2 DIABETES MELLITUS
     Route: 048
     Dates: end: 20171225
  5. LIPROLOG [Concomitant]
     Active Substance: INSULIN LISPRO
     Indication: PRODUCT USED FOR UNKNOWN INDICATION
     Route: 065
  6. DULAGLUTIDE. [Concomitant]
     Active Substance: DULAGLUTIDE
     Indication: TYPE 2 DIABETES MELLITUS
     Route: 065
  7. APLONA [Concomitant]
     Indication: FAECES HARD
     Route: 048

REACTIONS (10)
  - Acidosis [Unknown]
  - Altered state of consciousness [Unknown]
  - Metabolic acidosis [Unknown]
  - Renal failure [Unknown]
  - Hyperlipidaemia [Unknown]
  - Diarrhoea [Unknown]
  - Intestinal haemorrhage [Unknown]
  - Gastrointestinal oedema [Unknown]
  - Dehydration [Unknown]
  - Blood pH abnormal [Unknown]

NARRATIVE: CASE EVENT DATE: 201707
